FAERS Safety Report 19077557 (Version 2)
Quarter: 2021Q2

REPORT INFORMATION
  Report Type: Spontaneous
  Country: IN (occurrence: IN)
  Receive Date: 20210331
  Receipt Date: 20210406
  Transmission Date: 20210717
  Serious: Yes (Other)
  Sender: FDA-Public Use
  Company Number: IN-PFIZER INC-2014213413

PATIENT
  Age: 68 Year
  Sex: Male

DRUGS (5)
  1. FLUCONAZOLE. [Concomitant]
     Active Substance: FLUCONAZOLE
     Indication: PSORIASIS
     Dosage: UNK
     Route: 048
  2. METHOTREXATE SODIUM. [Suspect]
     Active Substance: METHOTREXATE SODIUM
     Indication: PSORIASIS
     Dosage: 1850 MG(CUMULATIVE DOSE )
  3. FILGRASTIM [Concomitant]
     Active Substance: FILGRASTIM
     Indication: PSORIASIS
     Dosage: 5 UG/KG, DAILY
     Route: 058
  4. CEFTAZIDIME. [Concomitant]
     Active Substance: CEFTAZIDIME
     Indication: PSORIASIS
     Dosage: UNK (1 UNK(GM 8TH HOURLY,))
  5. METHOTREXATE SODIUM. [Suspect]
     Active Substance: METHOTREXATE SODIUM
     Dosage: 15 MG, DAILY
     Route: 048

REACTIONS (5)
  - Skin ulcer [Unknown]
  - Intentional product misuse [Unknown]
  - Toxicity to various agents [Unknown]
  - Bone marrow failure [Unknown]
  - Gastrointestinal erosion [Unknown]
